FAERS Safety Report 9581993 (Version 2)
Quarter: 2013Q4

REPORT INFORMATION
  Report Type: Report from Study
  Country: PR (occurrence: PR)
  Receive Date: 20131002
  Receipt Date: 20131002
  Transmission Date: 20140711
  Serious: Yes (Hospitalization, Other)
  Sender: FDA-Public Use
  Company Number: PR-ABBVIE-13P-131-1148104-00

PATIENT
  Sex: Female
  Weight: 48.58 kg

DRUGS (1)
  1. HUMIRA [Suspect]
     Indication: PRODUCT USED FOR UNKNOWN INDICATION
     Route: 058
     Dates: end: 20130815

REACTIONS (3)
  - Gastrointestinal inflammation [Recovering/Resolving]
  - Haemoglobin decreased [Unknown]
  - Intestinal stenosis [Recovering/Resolving]
